FAERS Safety Report 21249998 (Version 1)
Quarter: 2022Q3

REPORT INFORMATION
  Report Type: Spontaneous
  Country: US (occurrence: US)
  Receive Date: 20220824
  Receipt Date: 20220824
  Transmission Date: 20221026
  Serious: Yes (Other)
  Sender: FDA-Public Use
  Company Number: US-BAYER-2022P011404

PATIENT
  Age: 55 Year
  Sex: Male

DRUGS (3)
  1. DAROLUTAMIDE [Suspect]
     Active Substance: DAROLUTAMIDE
     Indication: Prostate cancer metastatic
     Dosage: 600 MG, BID
     Dates: start: 20220301
  2. RELUGOLIX [Concomitant]
     Active Substance: RELUGOLIX
     Indication: Prostate cancer metastatic
     Dosage: UNK, QD
     Dates: start: 20220114
  3. DOCETAXEL [Concomitant]
     Active Substance: DOCETAXEL
     Indication: Prostate cancer metastatic
     Dosage: EVERY 3 WEEKS FOR 6 CYCLES
     Dates: start: 20220128

REACTIONS (3)
  - Urinary retention [None]
  - Loss of libido [None]
  - Hot flush [None]

NARRATIVE: CASE EVENT DATE: 20220401
